FAERS Safety Report 8559628-X (Version None)
Quarter: 2012Q3

REPORT INFORMATION
  Report Type: 
  Country: None (occurrence: None)
  Receive Date: 20120802
  Receipt Date: 20120723
  Transmission Date: 20120928
  Serious: Yes (Hospitalization, Disabling, Other)
  Sender: FDA-Public Use
  Company Number: US-009507513-1205USA02845

PATIENT

DRUGS (4)
  1. BONIVA [Suspect]
     Indication: OSTEOPOROSIS
  2. FOSAMAX [Suspect]
     Indication: OSTEOPOROSIS
     Route: 048
     Dates: start: 20000101
  3. FOSAMAX PLUS D [Suspect]
  4. VITAMIN E [Concomitant]
     Dosage: 400 MG, UNK
     Dates: start: 19920101

REACTIONS (6)
  - GINGIVAL DISORDER [None]
  - STRESS FRACTURE [None]
  - FEMUR FRACTURE [None]
  - LOW TURNOVER OSTEOPATHY [None]
  - TOOTH DISORDER [None]
  - OSTEOPOROSIS [None]
